FAERS Safety Report 23508341 (Version 1)
Quarter: 2024Q1

REPORT INFORMATION
  Report Type: Spontaneous
  Country: US (occurrence: US)
  Receive Date: 20240209
  Receipt Date: 20240209
  Transmission Date: 20240410
  Serious: Yes (Other)
  Sender: FDA-Public Use
  Company Number: US-BRISTOL-MYERS SQUIBB COMPANY-2024-019345

PATIENT
  Age: 93 Year
  Sex: Female
  Weight: 54.88 kg

DRUGS (2)
  1. REVLIMID [Suspect]
     Active Substance: LENALIDOMIDE
     Indication: Diffuse large B-cell lymphoma
     Dosage: FREQUENCY: 21D ON 7D OFF
     Route: 048
     Dates: start: 20231101
  2. REVLIMID [Suspect]
     Active Substance: LENALIDOMIDE
     Dosage: FREQUENCY: 3 WKSON/1 WKOFF
     Route: 048
     Dates: start: 20240101

REACTIONS (4)
  - Off label use [Unknown]
  - Aplastic anaemia [Not Recovered/Not Resolved]
  - Chills [Unknown]
  - Feeling abnormal [Unknown]
